FAERS Safety Report 12310001 (Version 1)
Quarter: 2016Q2

REPORT INFORMATION
  Report Type: Spontaneous
  Country: US (occurrence: None)
  Receive Date: 20160426
  Receipt Date: 20160426
  Transmission Date: 20160815
  Serious: No
  Sender: FDA-Public Use
  Company Number: None

PATIENT
  Age: 68 Year
  Sex: Male
  Weight: 76.4 kg

DRUGS (1)
  1. TIOTROPIUM [Suspect]
     Active Substance: TIOTROPIUM
     Dosage: 2 PUFF(S) EVERYDAY INHALE
     Route: 055
     Dates: start: 20160108, end: 20160108

REACTIONS (3)
  - Dizziness [None]
  - Confusional state [None]
  - Oropharyngeal pain [None]

NARRATIVE: CASE EVENT DATE: 20160108
